FAERS Safety Report 7663444-0 (Version None)
Quarter: 2011Q3

REPORT INFORMATION
  Report Type: 
  Country: None (occurrence: None)
  Receive Date: 20110805
  Receipt Date: 20100730
  Transmission Date: 20111222
  Serious: No
  Sender: FDA-Public Use
  Company Number: US-ABBOTT-10P-163-0659959-00

PATIENT
  Sex: Female
  Weight: 61.29 kg

DRUGS (5)
  1. CITALOPRAM HYDROBROMIDE [Suspect]
     Indication: ANXIETY
     Route: 048
     Dates: start: 20100101
  2. CITALOPRAM HYDROBROMIDE [Suspect]
     Indication: DEPRESSION
  3. NIASPAN [Suspect]
     Indication: BLOOD CHOLESTEROL INCREASED
     Dosage: ORG TABS
     Route: 048
     Dates: start: 20100301, end: 20100628
  4. MELATONIN [Concomitant]
     Indication: SUPPLEMENTATION THERAPY
     Route: 048
  5. LEVOXYL [Concomitant]
     Indication: THYROIDECTOMY
     Route: 048

REACTIONS (4)
  - INSOMNIA [None]
  - RASH [None]
  - MUSCULAR WEAKNESS [None]
  - HOT FLUSH [None]
